FAERS Safety Report 25951201 (Version 1)
Quarter: 2025Q4

REPORT INFORMATION
  Report Type: Report from Study
  Country: JP (occurrence: JP)
  Receive Date: 20251023
  Receipt Date: 20251023
  Transmission Date: 20260117
  Serious: Yes (Hospitalization)
  Sender: RADIUS PHARM
  Company Number: JP-RADIUS HEALTH INC.-JP-RADIUS-25055793

PATIENT
  Age: 57 Year
  Sex: Female

DRUGS (1)
  1. ABALOPARATIDE [Suspect]
     Active Substance: ABALOPARATIDE
     Indication: Bone density decreased
     Dosage: 80 MICROGRAM, QD
     Route: 058
     Dates: start: 20240215, end: 20251015

REACTIONS (1)
  - Spinal fracture [Unknown]
